FAERS Safety Report 6124270-7 (Version None)
Quarter: 2009Q1

REPORT INFORMATION
  Report Type: 
  Country: None (occurrence: None)
  Receive Date: 20090317
  Receipt Date: 20090309
  Transmission Date: 20090719
  Serious: Yes (Hospitalization)
  Sender: FDA-Public Use
  Company Number: 2009SP004419

PATIENT
  Age: 35 Year
  Sex: Female
  Weight: 80 kg

DRUGS (9)
  1. PEG-INTRON [Suspect]
     Indication: HEPATITIS C
     Dosage: 120 MCG; QW; 42 MCG; QW, 72 MCG, QW
     Dates: end: 20090220
  2. PEG-INTRON [Suspect]
     Indication: HEPATITIS C
     Dosage: 120 MCG; QW; 42 MCG; QW, 72 MCG, QW
     Dates: start: 20081208
  3. BLINDED SCH 503034 (S-P) (HCV PROTEASE INJIBITOR) [Suspect]
     Indication: HEPATITIS C
     Dosage: 800 MG; TID; PO
     Route: 048
     Dates: start: 20090105, end: 20090225
  4. RIBAVIRIN [Suspect]
     Indication: HEPATITIS C
     Dosage: 1200 MG; QD; PO
     Route: 048
     Dates: start: 20081208, end: 20090225
  5. PREVACIC [Concomitant]
  6. ADVIL LIQUI-GELS [Concomitant]
  7. TYLENOL [Concomitant]
  8. TYLENOL (CAPLET) [Concomitant]
  9. LASIX [Concomitant]

REACTIONS (2)
  - CHOLECYSTITIS [None]
  - GALLBLADDER DISORDER [None]
